FAERS Safety Report 7753817-X (Version None)
Quarter: 2011Q3

REPORT INFORMATION
  Report Type: 
  Country: None (occurrence: None)
  Receive Date: 20110915
  Receipt Date: 20110913
  Transmission Date: 20111222
  Serious: Yes (Hospitalization, Disabling, Other)
  Sender: FDA-Public Use
  Company Number: IE-MERCK-1108GBR00036

PATIENT
  Age: 60 Year
  Sex: Female

DRUGS (7)
  1. RALOXIFENE HYDROCHLORIDE [Concomitant]
     Indication: OSTEOPOROSIS
     Route: 065
     Dates: start: 20010101, end: 20040101
  2. ATORVASTATIN CALCIUM [Concomitant]
     Indication: BLOOD CHOLESTEROL INCREASED
     Route: 065
     Dates: start: 20010101, end: 20040101
  3. FOSAMAX [Suspect]
     Indication: OSTEOPOROSIS
     Route: 048
     Dates: start: 20010101, end: 20040101
  4. CALCIUM CARBONATE AND CHOLECALCIFEROL [Concomitant]
     Route: 065
     Dates: start: 20010101, end: 20040101
  5. BENDROFLUMETHIAZIDE AND POTASSIUM CHLORIDE [Concomitant]
     Indication: OSTEOPOROSIS
     Route: 065
     Dates: start: 20010101, end: 20040101
  6. SULFASALAZINE [Concomitant]
     Indication: RHEUMATOID ARTHRITIS
     Route: 065
     Dates: start: 20010101, end: 20040101
  7. IRBESARTAN [Concomitant]
     Indication: BLOOD PRESSURE INCREASED
     Route: 065
     Dates: start: 20010101, end: 20040101

REACTIONS (2)
  - DYSPEPSIA [None]
  - STRESS FRACTURE [None]
